FAERS Safety Report 9970119 (Version 2)
Quarter: 2014Q2

REPORT INFORMATION
  Report Type: Spontaneous
  Country: IT (occurrence: IT)
  Receive Date: 20140306
  Receipt Date: 20140415
  Transmission Date: 20141212
  Serious: Yes (Other)
  Sender: FDA-Public Use
  Company Number: PHHY2014IT024444

PATIENT
  Age: 66 Year
  Sex: Female

DRUGS (12)
  1. LETROZOLE [Suspect]
     Indication: METASTASES TO PERITONEUM
  2. CYCLOPHOSPHAMIDE [Suspect]
     Indication: INVASIVE LOBULAR BREAST CARCINOMA
  3. TAMOXIFEN [Suspect]
     Indication: INVASIVE LOBULAR BREAST CARCINOMA
  4. DOCETAXEL [Suspect]
  5. EPIRUBICIN [Suspect]
     Indication: INVASIVE LOBULAR BREAST CARCINOMA
  6. EPIRUBICIN [Suspect]
     Indication: METASTASES TO BONE
     Dates: start: 201212
  7. CAPECITABINE [Suspect]
     Indication: METASTASES TO SKIN
     Dates: start: 201102
  8. VINORELBINE [Suspect]
  9. TRASTUZUMAB [Suspect]
  10. NAVELBINE [Suspect]
  11. FULVESTRANT [Suspect]
  12. LAPATINIB [Suspect]
     Indication: METASTASES TO SKIN

REACTIONS (7)
  - Metastases to bone [Not Recovered/Not Resolved]
  - Metastases to ovary [Recovering/Resolving]
  - Metastases to stomach [Recovering/Resolving]
  - Metastases to peritoneum [Recovering/Resolving]
  - Metastases to skin [Recovering/Resolving]
  - Invasive lobular breast carcinoma [Recovering/Resolving]
  - Malignant neoplasm progression [Unknown]
